FAERS Safety Report 8956546 (Version 1)
Quarter: 2012Q4

REPORT INFORMATION
  Report Type: 
  Country: US (occurrence: US)
  Receive Date: 20121210
  Receipt Date: 20121210
  Transmission Date: 20130627
  Serious: No
  Sender: FDA-Public Use
  Company Number: US-PFIZER INC-2012310002

PATIENT
  Age: 55 Year
  Sex: Female
  Weight: 66.21 kg

DRUGS (2)
  1. LYRICA [Suspect]
     Indication: FIBROMYALGIA
     Dosage: 75 mg, 2x/day
     Dates: start: 20120619
  2. LYRICA [Suspect]
     Dosage: 150 mg, 2x/day
     Dates: start: 2012, end: 20121207

REACTIONS (3)
  - Pain [Unknown]
  - Insomnia [Unknown]
  - Drug ineffective [Unknown]
